FAERS Safety Report 5960309-7 (Version None)
Quarter: 2008Q4

REPORT INFORMATION
  Report Type: 
  Country: None (occurrence: None)
  Receive Date: 20081120
  Receipt Date: 20081110
  Transmission Date: 20090506
  Serious: Yes (Hospitalization)
  Sender: FDA-Public Use
  Company Number: US-SANOFI-SYNTHELABO-A03200804431

PATIENT
  Sex: Female

DRUGS (3)
  1. AMBIEN [Suspect]
     Indication: DRUG USE FOR UNKNOWN INDICATION
     Route: 048
     Dates: start: 19980101, end: 20080801
  2. BLOOD PRESSURE MEDICATION [Concomitant]
     Indication: BLOOD PRESSURE ABNORMAL
     Dosage: UNK
     Route: 065
  3. HYZAAR [Concomitant]
     Indication: BLOOD PRESSURE ABNORMAL
     Dosage: UNK
     Route: 065

REACTIONS (6)
  - AMNESIA [None]
  - FALL [None]
  - NERVE COMPRESSION [None]
  - RIB FRACTURE [None]
  - SOMNAMBULISM [None]
  - SPINAL FRACTURE [None]
